FAERS Safety Report 5196874-X (Version None)
Quarter: 2007Q1

REPORT INFORMATION
  Report Type: 
  Country: None (occurrence: None)
  Receive Date: 20070103
  Receipt Date: 20061222
  Transmission Date: 20070707
  Serious: Yes (Hospitalization, Other)
  Sender: FDA-Public Use
  Company Number: KR-BAYER-200616549GDS

PATIENT
  Age: 58 Year
  Sex: Male
  Weight: 71 kg

DRUGS (13)
  1. SORAFENIB [Suspect]
     Indication: RENAL CELL CARCINOMA STAGE UNSPECIFIED
     Dosage: TOTAL DAILY DOSE: 800 MG
     Route: 048
     Dates: start: 20061130, end: 20061212
  2. MORPHINE SULFATE [Concomitant]
     Indication: DRUG USE FOR UNKNOWN INDICATION
     Route: 048
     Dates: start: 20060907, end: 20061201
  3. NIFEDIPINE [Concomitant]
     Indication: DRUG USE FOR UNKNOWN INDICATION
     Route: 060
     Dates: start: 20061212, end: 20061212
  4. FAMOTIDINE [Concomitant]
     Indication: ANTACID THERAPY
     Route: 048
     Dates: start: 20061212
  5. LACTULOSE [Concomitant]
     Indication: DRUG USE FOR UNKNOWN INDICATION
     Route: 048
     Dates: start: 20061122
  6. METOCLOPRAMIDE [Concomitant]
     Indication: DRUG USE FOR UNKNOWN INDICATION
     Route: 048
     Dates: start: 20060908
  7. RANITIDINE [Concomitant]
     Indication: ANTACID THERAPY
     Route: 048
     Dates: start: 20060907
  8. FERROUS SULFATE TAB [Concomitant]
     Indication: DRUG USE FOR UNKNOWN INDICATION
     Route: 048
     Dates: start: 20060907
  9. DIOMAGNITE [Concomitant]
     Indication: ANTACID THERAPY
     Route: 048
     Dates: start: 20061204
  10. ISOCONAZOLE NITRATE [Concomitant]
     Indication: LOCAL ANTIFUNGAL TREATMENT
     Route: 065
     Dates: start: 20061129
  11. BIFONAZOLE [Concomitant]
     Indication: LOCAL ANTIFUNGAL TREATMENT
     Route: 065
     Dates: start: 20061129
  12. FUROSEMIDE [Concomitant]
     Indication: DIURETIC THERAPY
     Route: 042
     Dates: start: 20061212, end: 20061213
  13. CEFAZOLIN SODIUM [Concomitant]
     Indication: ANTIBIOTIC PROPHYLAXIS
     Route: 042
     Dates: start: 20061213

REACTIONS (2)
  - DERMATITIS EXFOLIATIVE [None]
  - LEUKOCYTOCLASTIC VASCULITIS [None]
